FAERS Safety Report 15729932 (Version 1)
Quarter: 2018Q4

REPORT INFORMATION
  Report Type: Spontaneous
  Country: US (occurrence: US)
  Receive Date: 20181130
  Receipt Date: 20181130
  Transmission Date: 20190205
  Serious: No
  Sender: FDA-Public Use
  Company Number: None

PATIENT
  Age: 47 Year
  Sex: Female

DRUGS (2)
  1. TEMOZOLOMIDE 20MG SANDOZ [Suspect]
     Active Substance: TEMOZOLOMIDE
     Indication: BRAIN NEOPLASM MALIGNANT
     Dosage: ?          OTHER FREQUENCY:PM FOR 5 NIGHTS;?
     Dates: start: 20180818
  2. TEMOZOLOMIDE++ 100MG SANDOZ [Suspect]
     Active Substance: TEMOZOLOMIDE
     Indication: BRAIN NEOPLASM MALIGNANT
     Dosage: ?          OTHER FREQUENCY:PM FOR 5 NIGHTS;?
     Route: 048
     Dates: start: 20180818

REACTIONS (3)
  - Weight decreased [None]
  - Decreased appetite [None]
  - Dysgeusia [None]

NARRATIVE: CASE EVENT DATE: 20181028
